FAERS Safety Report 13834228 (Version 1)
Quarter: 2017Q3

REPORT INFORMATION
  Report Type: Spontaneous
  Country: US (occurrence: US)
  Receive Date: 20170804
  Receipt Date: 20170804
  Transmission Date: 20171127
  Serious: Yes (Life-Threatening, Hospitalization)
  Sender: FDA-Public Use
  Company Number: None

PATIENT
  Age: 66 Year
  Sex: Male
  Weight: 87.62 kg

DRUGS (14)
  1. MAGNESIUM CITRATE. [Concomitant]
     Active Substance: MAGNESIUM CITRATE
  2. FOLIC ACID. [Concomitant]
     Active Substance: FOLIC ACID
  3. LIVALO [Concomitant]
     Active Substance: PITAVASTATIN CALCIUM
  4. ZEAXANTHIN W/LUTEIN [Concomitant]
  5. ARMOUR THYROID [Concomitant]
     Active Substance: THYROID, PORCINE
  6. VITAMIN B12 [Concomitant]
     Active Substance: CYANOCOBALAMIN
  7. ULORIC [Concomitant]
     Active Substance: FEBUXOSTAT
  8. XARELTO [Concomitant]
     Active Substance: RIVAROXABAN
  9. VITAMIN D [Concomitant]
     Active Substance: CHOLECALCIFEROL
  10. COENZYME Q [Concomitant]
  11. JANUVIA [Suspect]
     Active Substance: SITAGLIPTIN PHOSPHATE
     Indication: DIABETES MELLITUS
     Route: 048
     Dates: start: 20170519, end: 20170718
  12. ASTAXANTHIN [Concomitant]
  13. VITAMIN C [Concomitant]
     Active Substance: ASCORBIC ACID
  14. VITAMIN B6 [Concomitant]
     Active Substance: PYRIDOXINE HYDROCHLORIDE

REACTIONS (6)
  - Cardiac tamponade [None]
  - Device related thrombosis [None]
  - Thrombosis [None]
  - Pneumonia [None]
  - Pleural effusion [None]
  - Viral infection [None]

NARRATIVE: CASE EVENT DATE: 20170620
